FAERS Safety Report 10201313 (Version 2)
Quarter: 2014Q2

REPORT INFORMATION
  Report Type: Spontaneous
  Country: BR (occurrence: BR)
  Receive Date: 20140528
  Receipt Date: 20140624
  Transmission Date: 20141212
  Serious: Yes (Death, Hospitalization)
  Sender: FDA-Public Use
  Company Number: BR-SA-2014SA066103

PATIENT
  Age: 72 Year
  Sex: Male

DRUGS (4)
  1. LANTUS [Suspect]
     Indication: TYPE 2 DIABETES MELLITUS
     Route: 058
     Dates: start: 201401
  2. INSULIN PEN NOS [Concomitant]
     Indication: DEVICE THERAPY
  3. ALL OTHER THERAPEUTIC PRODUCTS [Concomitant]
  4. ASPIRIN [Concomitant]

REACTIONS (5)
  - Cardiac arrest [Fatal]
  - Swelling [Fatal]
  - Extremity necrosis [Fatal]
  - General physical health deterioration [Fatal]
  - Paralysis [Fatal]
